FAERS Safety Report 5941585-3 (Version None)
Quarter: 2008Q4

REPORT INFORMATION
  Report Type: 
  Country: None (occurrence: None)
  Receive Date: 20081103
  Receipt Date: 20081023
  Transmission Date: 20090506
  Serious: Yes (Other)
  Sender: FDA-Public Use
  Company Number: 20080303

PATIENT
  Age: 48 Year
  Sex: Female

DRUGS (1)
  1. VENOFER [Suspect]
     Indication: ANAEMIA
     Dosage: 300 MG, 2 DOSES, INTRAVENOUS
     Route: 042
     Dates: start: 20080701, end: 20080701

REACTIONS (4)
  - ARTHRALGIA [None]
  - FACE OEDEMA [None]
  - NO REACTION ON PREVIOUS EXPOSURE TO DRUG [None]
  - RASH [None]
